FAERS Safety Report 8205884-7 (Version None)
Quarter: 2012Q1

REPORT INFORMATION
  Report Type: 
  Country: None (occurrence: None)
  Receive Date: 20120313
  Receipt Date: 20120305
  Transmission Date: 20120608
  Serious: Yes (Hospitalization, Other)
  Sender: FDA-Public Use
  Company Number: PHHY2012AU019991

PATIENT
  Age: 26 Year
  Sex: Male

DRUGS (2)
  1. VENLAFAXINE [Suspect]
     Dosage: 37.5 MG, QD
  2. VENLAFAXINE [Suspect]
     Dosage: 300 MG, QD

REACTIONS (8)
  - SUICIDAL IDEATION [None]
  - AKATHISIA [None]
  - HOMICIDAL IDEATION [None]
  - SUICIDAL BEHAVIOUR [None]
  - FATIGUE [None]
  - AGGRESSION [None]
  - AKINESIA [None]
  - MENTAL IMPAIRMENT [None]
